FAERS Safety Report 4928200-2 (Version None)
Quarter: 2006Q1

REPORT INFORMATION
  Report Type: 
  Country: None (occurrence: None)
  Receive Date: 20060223
  Receipt Date: 20060208
  Transmission Date: 20060701
  Serious: Yes (Hospitalization)
  Sender: FDA-Public Use
  Company Number: 8014924

PATIENT
  Age: 45 Year
  Sex: Male

DRUGS (2)
  1. KEPPRA [Suspect]
     Indication: EPILEPSY
     Dosage: 2000 MG/D PO
     Route: 048
     Dates: start: 20051013, end: 20051215
  2. TRILEPTAL [Suspect]
     Indication: EPILEPSY
     Dosage: 2100 MG/D ODT

REACTIONS (4)
  - DECREASED ACTIVITY [None]
  - ELECTROENCEPHALOGRAM ABNORMAL [None]
  - PERSONALITY CHANGE DUE TO A GENERAL MEDICAL CONDITION [None]
  - STATUS EPILEPTICUS [None]
